FAERS Safety Report 7309945-6 (Version None)
Quarter: 2011Q1

REPORT INFORMATION
  Report Type: 
  Country: None (occurrence: None)
  Receive Date: 20110224
  Receipt Date: 20101216
  Transmission Date: 20110831
  Serious: Yes (Disabling)
  Sender: FDA-Public Use
  Company Number: US-BAYER-2010-002839

PATIENT
  Sex: Male

DRUGS (1)
  1. NEXAVAR EDUCATIION COMPAIGN IN US [Suspect]
     Indication: HEPATIC NEOPLASM MALIGNANT
     Dosage: 400 MG, BID
     Route: 048
     Dates: start: 20101019, end: 20101208

REACTIONS (5)
  - DRY SKIN [None]
  - ACTIVITIES OF DAILY LIVING IMPAIRED [None]
  - OEDEMA PERIPHERAL [None]
  - BURNING SENSATION [None]
  - GAIT DISTURBANCE [None]
